FAERS Safety Report 5710184-0 (Version None)
Quarter: 2008Q2

REPORT INFORMATION
  Report Type: 
  Country: None (occurrence: None)
  Receive Date: 20080418
  Receipt Date: 20080201
  Transmission Date: 20081010
  Serious: No
  Sender: FDA-Public Use
  Company Number: US-ASTRAZENECA-2008UW02284

PATIENT
  Age: 47 Year
  Sex: Female
  Weight: 81.6 kg

DRUGS (5)
  1. TOPROL-XL [Suspect]
     Route: 048
     Dates: start: 20050301
  2. XANAX [Concomitant]
  3. AMBIEN [Concomitant]
  4. COZAAR [Concomitant]
  5. DIGOXIN [Concomitant]

REACTIONS (1)
  - MUSCLE TWITCHING [None]
